FAERS Safety Report 5476285-X (Version None)
Quarter: 2007Q4

REPORT INFORMATION
  Report Type: 
  Country: None (occurrence: None)
  Receive Date: 20071003
  Receipt Date: 20070927
  Transmission Date: 20080405
  Serious: Yes (Hospitalization)
  Sender: FDA-Public Use
  Company Number: US-GILEAD-2007-0013505

PATIENT
  Sex: Female
  Weight: 88.076 kg

DRUGS (11)
  1. LETAIRIS [Suspect]
     Indication: PULMONARY HYPERTENSION
     Route: 048
     Dates: start: 20070910, end: 20070918
  2. DIGOXIN [Concomitant]
     Route: 048
  3. TORSEMIDE [Concomitant]
     Route: 048
  4. NEXIUM [Concomitant]
     Route: 048
  5. TYLENOL (CAPLET) [Concomitant]
     Route: 048
  6. POTASSIUM CHLORIDE [Concomitant]
     Route: 048
  7. IMODIUM [Concomitant]
     Route: 048
  8. OXYGEN [Concomitant]
     Route: 055
  9. AMILIORIDE [Concomitant]
     Route: 048
  10. LEXAPRO [Concomitant]
     Route: 048
  11. TOPROL-XL [Concomitant]
     Route: 048

REACTIONS (2)
  - DYSPNOEA [None]
  - OEDEMA [None]
